FAERS Safety Report 13020078 (Version 1)
Quarter: 2016Q4

REPORT INFORMATION
  Report Type: Spontaneous
  Country: JP (occurrence: JP)
  Receive Date: 20161212
  Receipt Date: 20161212
  Transmission Date: 20170207
  Serious: Yes (Hospitalization)
  Sender: FDA-Public Use
  Company Number: JP-PURDUE PHARMA-GBR-2016-0042201

PATIENT
  Age: 59 Year
  Sex: Male

DRUGS (11)
  1. NAIXAN                             /00256201/ [Concomitant]
     Active Substance: NAPROXEN
     Indication: BONE NEOPLASM
     Dosage: 300 MG, DAILY
     Route: 048
     Dates: start: 20160929
  2. LYRICA [Concomitant]
     Active Substance: PREGABALIN
     Indication: BONE NEOPLASM
     Dosage: 300 MG, DAILY
     Route: 048
     Dates: start: 20160514
  3. ETOPOSIDE. [Concomitant]
     Active Substance: ETOPOSIDE
     Indication: BONE NEOPLASM
     Dosage: 129 MG, DAILY
     Route: 041
     Dates: start: 20161001, end: 20161003
  4. FERRUM                             /00023505/ [Concomitant]
     Indication: ANAEMIA
     Dosage: 100 MG, DAILY
     Route: 048
     Dates: start: 20160927
  5. OXYCONTIN [Suspect]
     Active Substance: OXYCODONE HYDROCHLORIDE
     Indication: BONE NEOPLASM
     Dosage: 30 MG, BID
     Route: 048
     Dates: start: 20160514
  6. IFOMIDE [Suspect]
     Active Substance: IFOSFAMIDE
     Indication: BONE NEOPLASM
     Dosage: 5.1 G, DAILY
     Route: 065
     Dates: start: 20161001, end: 20161003
  7. MAGMITT [Concomitant]
     Active Substance: MAGNESIUM OXIDE
     Indication: CONSTIPATION
     Dosage: 990 MG, DAILY
     Route: 048
     Dates: start: 20160514
  8. EMEND [Concomitant]
     Active Substance: APREPITANT
     Indication: BONE NEOPLASM
     Dosage: 205 MG, DAILY
     Route: 048
     Dates: start: 20160712
  9. SENNOSIDE                          /00571901/ [Concomitant]
     Active Substance: SENNOSIDES A AND B
     Indication: CONSTIPATION
     Dosage: 24 MG, DAILY
     Route: 048
     Dates: start: 20160514
  10. LANSOPRAZOLE. [Concomitant]
     Active Substance: LANSOPRAZOLE
     Indication: GASTRITIS
     Dosage: 15 MG, DAILY
     Route: 048
     Dates: start: 20160514
  11. DEXART [Concomitant]
     Active Substance: DEXAMETHASONE SODIUM PHOSPHATE
     Indication: BONE NEOPLASM
     Dosage: 5 MG, DAILY
     Route: 041
     Dates: start: 20161001, end: 20161003

REACTIONS (1)
  - Encephalopathy [Recovered/Resolved]

NARRATIVE: CASE EVENT DATE: 20161003
